FAERS Safety Report 4652382-3 (Version None)
Quarter: 2005Q2

REPORT INFORMATION
  Report Type: 
  Country: None (occurrence: None)
  Receive Date: 20050502
  Receipt Date: 20050502
  Transmission Date: 20051028
  Serious: Yes (Hospitalization)
  Sender: FDA-Public Use
  Company Number: None

PATIENT
  Age: 39 Year
  Sex: Male
  Weight: 67 kg

DRUGS (9)
  1. ROCURONIUM   100MG VIAL [Suspect]
     Indication: GENERAL ANAESTHESIA
     Dosage: 50 MG  ONE TIME INTRAVENOU
     Route: 042
     Dates: start: 20050425, end: 20050425
  2. PRIMAXIN [Suspect]
     Indication: PERITONITIS
     Dosage: 500 MG  ONE TIME  INTRAVENOU
     Route: 042
     Dates: start: 20050425, end: 20050425
  3. HYDROMORPHONE HCL [Concomitant]
  4. VECURONIUM [Concomitant]
  5. MIDAZOLAM [Concomitant]
  6. FENTANYL [Concomitant]
  7. PROPOFOL [Concomitant]
  8. ULTANE [Concomitant]
  9. VECURONIUM [Concomitant]

REACTIONS (9)
  - ANAESTHETIC COMPLICATION [None]
  - ANAESTHETIC COMPLICATION PULMONARY [None]
  - ANAESTHETIC COMPLICATION VASCULAR [None]
  - ANAPHYLACTIC REACTION [None]
  - BRONCHOSPASM [None]
  - HYPOTENSION [None]
  - HYPOXIA [None]
  - RASH [None]
  - URTICARIA [None]
